FAERS Safety Report 16200838 (Version 1)
Quarter: 2019Q2

REPORT INFORMATION
  Report Type: Spontaneous
  Country: US (occurrence: US)
  Receive Date: 20190416
  Receipt Date: 20190416
  Transmission Date: 20190711
  Serious: No
  Sender: FDA-Public Use
  Company Number: US-BION-007374

PATIENT
  Sex: Female
  Weight: 82 kg

DRUGS (10)
  1. VICKS [Concomitant]
  2. QUINAPRIL. [Concomitant]
     Active Substance: QUINAPRIL
     Indication: CARDIAC DISORDER
  3. JANUVIA [Concomitant]
     Active Substance: SITAGLIPTIN PHOSPHATE
     Indication: DIABETES MELLITUS
  4. NADOLOL. [Concomitant]
     Active Substance: NADOLOL
  5. LACTULOSE. [Concomitant]
     Active Substance: LACTULOSE
  6. BACITRACIN. [Concomitant]
     Active Substance: BACITRACIN
  7. MICONAZOLE. [Concomitant]
     Active Substance: MICONAZOLE
  8. ALEVE [Suspect]
     Active Substance: NAPROXEN SODIUM
     Indication: PRODUCT USED FOR UNKNOWN INDICATION
     Dosage: DOSE: 2-5 LIQUID GELS DAILY
     Route: 048
  9. WITCH HAZEL. [Concomitant]
     Active Substance: WITCH HAZEL
  10. GENUINE BAYER ASPIRIN 325 MG UNKNOWN [Concomitant]
     Dosage: STRENGTH: 325 MG?DOSE: 1/2 - 1 TABLET
     Route: 048

REACTIONS (3)
  - Incorrect product administration duration [Not Recovered/Not Resolved]
  - Product coating issue [Unknown]
  - Intentional overdose [Not Recovered/Not Resolved]
